FAERS Safety Report 8144703-4 (Version None)
Quarter: 2012Q1

REPORT INFORMATION
  Report Type: 
  Country: None (occurrence: None)
  Receive Date: 20120217
  Receipt Date: 20120209
  Transmission Date: 20120608
  Serious: Yes (Death, Life-Threatening, Hospitalization)
  Sender: FDA-Public Use
  Company Number: JP-EISAI INC-E7389-01537-SPO-JP

PATIENT
  Sex: Female
  Weight: 62 kg

DRUGS (22)
  1. HALAVEN [Suspect]
     Route: 041
     Dates: start: 20110804, end: 20110825
  2. OXINORM [Concomitant]
     Route: 048
  3. ELCITONIN [Concomitant]
     Route: 041
  4. ZOMETA [Concomitant]
     Route: 041
  5. OXYCONTIN [Concomitant]
     Route: 048
  6. POSTERISAN [Concomitant]
  7. CEFEPIME DIHYDROCHLORIDE HYDRATE [Concomitant]
  8. HALAVEN [Suspect]
     Indication: METASTASES TO LYMPH NODES
  9. LEUCON [Concomitant]
     Route: 048
  10. CEPHARANTHINE [Concomitant]
     Route: 048
  11. PREDNISOLONE [Concomitant]
     Route: 041
  12. HALAVEN [Suspect]
     Indication: METASTASES TO BONE
  13. HALAVEN [Suspect]
     Indication: METASTASES TO LUNG
  14. PROHEPARUM [Concomitant]
     Route: 048
  15. OMEPRAZOLE [Concomitant]
     Route: 048
  16. KYTRIL [Concomitant]
     Route: 048
  17. NEOSTELIN GREEN [Concomitant]
  18. LASIX [Concomitant]
     Route: 041
  19. HALAVEN [Suspect]
  20. MAGMITT [Concomitant]
     Route: 048
  21. SELBEX [Concomitant]
     Route: 048
  22. CELECOXIB [Concomitant]
     Route: 048

REACTIONS (5)
  - THROMBOCYTOPENIA [None]
  - LEUKOPENIA [None]
  - DEPRESSED LEVEL OF CONSCIOUSNESS [None]
  - INTERSTITIAL LUNG DISEASE [None]
  - NEUTROPENIA [None]
